FAERS Safety Report 4691347-2 (Version None)
Quarter: 2005Q2

REPORT INFORMATION
  Report Type: 
  Country: None (occurrence: None)
  Receive Date: 20050610
  Receipt Date: 20050531
  Transmission Date: 20051028
  Serious: Yes (Other)
  Sender: FDA-Public Use
  Company Number: 2005081522

PATIENT
  Age: 75 Year
  Sex: Female

DRUGS (11)
  1. LIPITOR [Suspect]
     Indication: BLOOD CHOLESTEROL INCREASED
     Dosage: 10 MG (10 MG, 1 IN 1 D), ORAL
     Route: 048
  2. XALATAN [Suspect]
     Indication: GLAUCOMA
     Dosage: (1 DROP, 1 IN 1 D), OPTHTHALMIC
     Route: 047
     Dates: end: 20040101
  3. ALPHAGAN (BRIMONIDIE TARTRATE) [Concomitant]
  4. TRUSOPT [Concomitant]
  5. ALREX (LOTEPREDNOL ETABONATE) [Concomitant]
  6. PLAVIX [Concomitant]
  7. ACETYLSALICYLIC ACID SRT [Concomitant]
  8. AMIODARONE HCL [Concomitant]
  9. MAVIK [Concomitant]
  10. ATENOLOL [Concomitant]
  11. NIACIN [Concomitant]

REACTIONS (3)
  - BODY HEIGHT DECREASED [None]
  - MESENTERIC OCCLUSION [None]
  - MYOCARDIAL INFARCTION [None]
